FAERS Safety Report 15331107 (Version 1)
Quarter: 2018Q3

REPORT INFORMATION
  Report Type: Spontaneous
  Country: AU (occurrence: AU)
  Receive Date: 20180829
  Receipt Date: 20180829
  Transmission Date: 20181010
  Serious: Yes (Other)
  Sender: FDA-Public Use
  Company Number: AU-COLLEGIUM PHARMACEUTICAL, INC.-AU-2018COL013841

PATIENT
  Age: 30 Year
  Sex: Male

DRUGS (2)
  1. TRAMADOL HYDROCHLORIDE. [Concomitant]
     Active Substance: TRAMADOL HYDROCHLORIDE
     Indication: PRODUCT USED FOR UNKNOWN INDICATION
     Dosage: UNK
  2. TAPENTADOL HYDROCHLORIDE [Suspect]
     Active Substance: TAPENTADOL HYDROCHLORIDE
     Indication: PRODUCT USED FOR UNKNOWN INDICATION
     Dosage: 600 MG, QD

REACTIONS (3)
  - Overdose [Unknown]
  - Seizure [Unknown]
  - Psychotic disorder [Unknown]
